FAERS Safety Report 12919362 (Version 3)
Quarter: 2016Q4

REPORT INFORMATION
  Report Type: Report from Study
  Country: US (occurrence: US)
  Receive Date: 20161108
  Receipt Date: 20161205
  Transmission Date: 20170207
  Serious: Yes (Other)
  Sender: FDA-Public Use
  Company Number: US-GILEAD-2016-0242016

PATIENT
  Age: 81 Year
  Sex: Male
  Weight: 106.12 kg

DRUGS (20)
  1. ZOCOR [Concomitant]
     Active Substance: SIMVASTATIN
  2. VENTOLIN HFA [Concomitant]
     Active Substance: ALBUTEROL SULFATE
  3. QVAR [Concomitant]
     Active Substance: BECLOMETHASONE DIPROPIONATE
  4. AMBRISENTAN [Suspect]
     Active Substance: AMBRISENTAN
     Indication: PULMONARY ARTERIAL HYPERTENSION
     Dosage: 5 MG, QD
     Route: 048
     Dates: start: 20160810, end: 20161026
  5. ASPIRIN                            /00002701/ [Concomitant]
     Active Substance: ASPIRIN
  6. REVATIO [Concomitant]
     Active Substance: SILDENAFIL CITRATE
  7. VITAMIN E                          /00110501/ [Concomitant]
     Active Substance: TOCOPHEROL
  8. LEVOTHYROXINE. [Concomitant]
     Active Substance: LEVOTHYROXINE
  9. MULTIVITAMIN                       /00097801/ [Concomitant]
     Active Substance: VITAMINS
  10. GLUCOPHAGE [Concomitant]
     Active Substance: METFORMIN HYDROCHLORIDE
  11. FOSAMAX [Concomitant]
     Active Substance: ALENDRONATE SODIUM
  12. AMBRISENTAN [Suspect]
     Active Substance: AMBRISENTAN
     Indication: CARDIAC DISORDER
  13. LASIX [Concomitant]
     Active Substance: FUROSEMIDE
  14. AMBRISENTAN [Suspect]
     Active Substance: AMBRISENTAN
     Indication: HEART DISEASE CONGENITAL
  15. VITAMIN C [Concomitant]
     Active Substance: ASCORBIC ACID
  16. SANCTURA [Concomitant]
     Active Substance: TROSPIUM CHLORIDE
  17. COREG [Concomitant]
     Active Substance: CARVEDILOL
  18. LISINOPRIL. [Concomitant]
     Active Substance: LISINOPRIL
  19. ALDACTONE [Concomitant]
     Active Substance: SPIRONOLACTONE
  20. K-TAB [Concomitant]
     Active Substance: POTASSIUM CHLORIDE

REACTIONS (3)
  - Insomnia [Unknown]
  - Weight increased [Unknown]
  - Oedema peripheral [Unknown]
